FAERS Safety Report 5008928-9 (Version None)
Quarter: 2006Q2

REPORT INFORMATION
  Report Type: 
  Country: None (occurrence: None)
  Receive Date: 20060404
  Receipt Date: 20051108
  Transmission Date: 20061013
  Serious: No
  Sender: FDA-Public Use
  Company Number: US200511000259

PATIENT
  Age: 35 Year
  Sex: Male

DRUGS (1)
  1. CYMBALTA [Suspect]
     Indication: SCIATICA
     Dosage: 60 MG, DAILY (1/D)

REACTIONS (1)
  - TEMPERATURE REGULATION DISORDER [None]
